FAERS Safety Report 23176332 (Version 4)
Quarter: 2024Q1

REPORT INFORMATION
  Report Type: Report from Study
  Country: US (occurrence: US)
  Receive Date: 20231113
  Receipt Date: 20240329
  Transmission Date: 20240410
  Serious: Yes (Hospitalization, Other)
  Sender: FDA-Public Use
  Company Number: US-ALLERGAN-2238965US

PATIENT
  Age: 27 Year
  Sex: Female
  Weight: 55 kg

DRUGS (27)
  1. LINZESS [Suspect]
     Active Substance: LINACLOTIDE
     Indication: Constipation
     Dosage: DAILY DOSE: 290.0 ?G
     Route: 050
     Dates: start: 201307, end: 20221023
  2. LINZESS [Suspect]
     Active Substance: LINACLOTIDE
     Indication: Constipation
     Route: 048
  3. GLUTAMAX [Concomitant]
     Indication: Dehydration
     Dosage: DOSE DESC: UNK
  4. ORILISSA [Concomitant]
     Active Substance: ELAGOLIX SODIUM
     Indication: Product used for unknown indication
     Dosage: BY MOUTH ONCE DAILY
  5. LEVOMEFOLATE CALCIUM [Concomitant]
     Active Substance: LEVOMEFOLATE CALCIUM
     Indication: Anaemia
     Dosage: 2000 MILLIGRAM
  6. VITAMIN D2 [Concomitant]
     Active Substance: ERGOCALCIFEROL
     Indication: Constipation
     Dosage: 50,000 UNIT BY MOUTH
  7. NAPROXEN [Concomitant]
     Active Substance: NAPROXEN
     Indication: Back pain
     Dosage: DOSE DESC: UNK
  8. VITAMIN D3 [Concomitant]
     Active Substance: CHOLECALCIFEROL
     Indication: Vitamin D decreased
     Dosage: DOSE DESC: UNK
  9. OREGANO LEAF OIL [Concomitant]
     Active Substance: OREGANO LEAF OIL
     Indication: Gastrointestinal bacterial overgrowth
     Dosage: DOSE DESC: UNK
  10. NORTRIPTYLINE HYDROCHLORIDE [Concomitant]
     Active Substance: NORTRIPTYLINE HYDROCHLORIDE
     Indication: Gastrointestinal pain
     Dosage: DOSE DESC: UNK
  11. MELATONIN [Concomitant]
     Active Substance: MELATONIN
     Indication: Insomnia
     Dosage: DOSE DESC: UNK
  12. ZYRTEC [Concomitant]
     Active Substance: CETIRIZINE HYDROCHLORIDE
     Indication: Product used for unknown indication
     Dosage: TAKE 1 TABLET BY MOUTH ONCE DAILY
     Route: 048
  13. PROTONIX [Concomitant]
     Active Substance: PANTOPRAZOLE SODIUM
     Indication: Gastrooesophageal reflux disease
     Dosage: DOSE DESC: UNK
  14. CYMBALTA [Concomitant]
     Active Substance: DULOXETINE HYDROCHLORIDE
     Indication: Mood swings
     Dosage: DOSE DESC: UNK
  15. MIRTAZAPINE [Concomitant]
     Active Substance: MIRTAZAPINE
     Indication: Insomnia
     Dosage: DOSE DESC: UNK
  16. ATARAX [Concomitant]
     Active Substance: HYDROXYZINE HYDROCHLORIDE
     Indication: Anxiety
  17. MINOCYCLINE [Concomitant]
     Active Substance: MINOCYCLINE HYDROCHLORIDE
     Indication: Product used for unknown indication
     Dosage: BY MOUTH 2 TIMES A DAY AS NEEDED
  18. MYCIFRADIN [Concomitant]
     Active Substance: NEOMYCIN SULFATE
     Indication: Product used for unknown indication
     Dosage: TAKE 1000 MG BY MOUTH 2 TIMES A DAY AS NEEDED
  19. PHENERGAN [Concomitant]
     Active Substance: PROMETHAZINE HYDROCHLORIDE
     Indication: Product used for unknown indication
     Dosage: TIME INTERVAL: AS NECESSARY: 12.5 MG
  20. PHENERGAN [Concomitant]
     Active Substance: PROMETHAZINE HYDROCHLORIDE
     Indication: Product used for unknown indication
     Dosage: TIME INTERVAL: AS NECESSARY: 50 MG
  21. ULTRAM [Concomitant]
     Active Substance: TRAMADOL HYDROCHLORIDE
     Indication: Pain
     Dosage: 50 MG  BY MOUTH AS NEEDED. TOOK EVERY 4 TO 5 HRS
  22. DILAUDID [Concomitant]
     Active Substance: HYDROMORPHONE HYDROCHLORIDE
     Indication: Flank pain
     Dosage: TIME INTERVAL: AS NECESSARY: 2 MG TAKE 1 TABLET BY MOUTH ONCE EVERY 4 HOUR
  23. EMLA [Concomitant]
     Active Substance: LIDOCAINE\PRILOCAINE
     Indication: Product used for unknown indication
     Route: 061
     Dates: start: 20230421, end: 20230727
  24. FLOMAX [Concomitant]
     Active Substance: TAMSULOSIN HYDROCHLORIDE
     Indication: Product used for unknown indication
     Dosage: BY MOUTH EVERY EVENING
     Route: 048
     Dates: start: 20230503
  25. KENALOG [Concomitant]
     Active Substance: TRIAMCINOLONE ACETONIDE
     Indication: Product used for unknown indication
     Dosage: 0.1%  APPLY 1 APPLICATION TOPICALLY TWO TIMES A DAY AS NEEDED TO AFFECTED AREA FOR UP TO 14 DAYS,...
     Route: 061
     Dates: start: 20230627, end: 20230727
  26. REQUIP [Concomitant]
     Active Substance: ROPINIROLE HYDROCHLORIDE
     Indication: Restless legs syndrome
     Dosage: TAKE 1 TAB BY MOUTH DAILY EVERY NIGHT
     Route: 048
     Dates: start: 20230324, end: 20230914
  27. SCOPOLAMINE [Concomitant]
     Active Substance: SCOPOLAMINE
     Indication: Product used for unknown indication
     Dosage: TIME INTERVAL: AS NECESSARY: 1.5 MG   PLACE 1 PATCH ONTO THE SKIN EVERY THIRD DAY
     Route: 062
     Dates: start: 20230908

REACTIONS (45)
  - Anuria [Recovering/Resolving]
  - Hysterectomy [Recovered/Resolved]
  - Abdominal pain [Recovering/Resolving]
  - Abdominal distension [Unknown]
  - Blood glucose decreased [Recovered/Resolved]
  - Mesenteritis [Unknown]
  - Fluid retention [Recovered/Resolved]
  - Biliary dilatation [Unknown]
  - Pain [Unknown]
  - Electrolyte imbalance [Recovered/Resolved]
  - Leukopenia [Unknown]
  - Intestinal malrotation [Unknown]
  - Vomiting [Unknown]
  - Major depression [Unknown]
  - Endometriosis [Unknown]
  - Small intestinal obstruction [Recovered/Resolved]
  - Intestinal pseudo-obstruction [Unknown]
  - Malabsorption [Unknown]
  - Back pain [Unknown]
  - Intervertebral disc protrusion [Unknown]
  - Flank pain [Unknown]
  - Dyspnoea [Unknown]
  - C-reactive protein increased [Unknown]
  - Small intestinal obstruction [Unknown]
  - Sepsis [Unknown]
  - Vertigo [Unknown]
  - Urine output decreased [Unknown]
  - Small intestinal obstruction [Recovered/Resolved]
  - Small intestinal obstruction [Recovered/Resolved]
  - Hypersensitivity [Unknown]
  - Gastrooesophageal reflux disease [Unknown]
  - Small intestinal obstruction [Recovered/Resolved]
  - Device issue [Unknown]
  - Therapeutic nerve ablation [Unknown]
  - Small intestinal obstruction [Unknown]
  - Dizziness [Unknown]
  - Infection [Unknown]
  - Gastrointestinal decompression [Unknown]
  - Central venous catheterisation [Unknown]
  - Central venous catheter removal [Unknown]
  - Endometrial ablation [Unknown]
  - Central venous catheter removal [Unknown]
  - Central venous catheterisation [Unknown]
  - Central venous catheterisation [Unknown]
  - Central venous catheter removal [Unknown]

NARRATIVE: CASE EVENT DATE: 20140901
